FAERS Safety Report 18074507 (Version 1)
Quarter: 2020Q3

REPORT INFORMATION
  Report Type: Spontaneous
  Country: AR (occurrence: AR)
  Receive Date: 20200727
  Receipt Date: 20200727
  Transmission Date: 20201103
  Serious: Yes (Other)
  Sender: FDA-Public Use
  Company Number: AR-BAYER-2020-144857

PATIENT
  Age: 71 Year
  Sex: Male

DRUGS (4)
  1. TIPIRACIL;TRIFLURIDINE [Concomitant]
     Active Substance: TIPIRACIL HYDROCHLORIDE\TRIFLURIDINE
     Dosage: UNK
  2. REGORAFENIB. [Suspect]
     Active Substance: REGORAFENIB
     Indication: COLORECTAL CANCER
     Dosage: UNK
  3. TIPIRACIL;TRIFLURIDINE [Concomitant]
     Active Substance: TIPIRACIL HYDROCHLORIDE\TRIFLURIDINE
     Dosage: UNK
  4. CISPLATIN. [Concomitant]
     Active Substance: CISPLATIN
     Dosage: UNK

REACTIONS (11)
  - Cyst [None]
  - Peritoneal disorder [None]
  - Unevaluable event [None]
  - Rash [None]
  - Metastases to liver [None]
  - Suture insertion [None]
  - Therapeutic product effect incomplete [None]
  - Palmar-plantar erythrodysaesthesia syndrome [None]
  - Suture related complication [None]
  - Metastases to lung [None]
  - Stomatitis [None]
